FAERS Safety Report 10080947 (Version 1)
Quarter: 2014Q2

REPORT INFORMATION
  Report Type: Spontaneous
  Country: US (occurrence: US)
  Receive Date: 20140416
  Receipt Date: 20140416
  Transmission Date: 20141212
  Serious: No
  Sender: FDA-Public Use
  Company Number: US-009507513-1404USA005838

PATIENT
  Age: 38 Year
  Sex: Female

DRUGS (2)
  1. BETAMETHASONE [Suspect]
     Indication: PULMONARY MASS
  2. BETAMETHASONE [Suspect]
     Indication: HYDROPS FOETALIS

REACTIONS (2)
  - Drug ineffective [Unknown]
  - Exposure during pregnancy [Recovered/Resolved]
